FAERS Safety Report 8515714-1 (Version None)
Quarter: 2012Q3

REPORT INFORMATION
  Report Type: 
  Country: None (occurrence: None)
  Receive Date: 20120717
  Receipt Date: 20120712
  Transmission Date: 20120928
  Serious: Yes (Other)
  Sender: FDA-Public Use
  Company Number: PHHY2011BR28965

PATIENT
  Sex: Female
  Weight: 75 kg

DRUGS (6)
  1. PHENOBARBITAL TAB [Concomitant]
     Dosage: 100 MG,DAILY
  2. TRILEPTAL [Suspect]
     Indication: EPILEPSY
     Dosage: 600 MG, TID
     Route: 048
     Dates: start: 20040101
  3. PHENOBARBITAL TAB [Concomitant]
     Indication: EPILEPSY
     Dosage: 100 MG DAILY
     Route: 048
  4. PHENOBARBITAL TAB [Concomitant]
     Dosage: 75 MG, DAILY
  5. PHENOBARBITAL TAB [Concomitant]
     Dosage: 50 MG, DAILY
  6. TRILEPTAL [Suspect]
     Indication: PETIT MAL EPILEPSY
     Dosage: 300 MG, 5QD
     Route: 048
     Dates: end: 20120101

REACTIONS (20)
  - HAEMORRHAGE [None]
  - VISUAL IMPAIRMENT [None]
  - TOOTH DISCOLOURATION [None]
  - UTERINE DISORDER [None]
  - CONFUSIONAL STATE [None]
  - PETIT MAL EPILEPSY [None]
  - FEELING HOT [None]
  - FALL [None]
  - SOMNOLENCE [None]
  - TOOTH FRACTURE [None]
  - PRURITUS [None]
  - OEDEMA PERIPHERAL [None]
  - FLUID RETENTION [None]
  - UTERINE LEIOMYOMA [None]
  - EPILEPSY [None]
  - WEIGHT INCREASED [None]
  - PIGMENTATION DISORDER [None]
  - TOOTH DISORDER [None]
  - HYPERSENSITIVITY [None]
  - ALOPECIA [None]
